FAERS Safety Report 8923755 (Version 1)
Quarter: 2012Q4

REPORT INFORMATION
  Report Type: 
  Country: US (occurrence: US)
  Receive Date: 20121126
  Receipt Date: 20121126
  Transmission Date: 20130627
  Serious: Yes (Hospitalization)
  Sender: FDA-Public Use
  Company Number: US-B.I. PHARMACEUTICALS,INC./RIDGEFIELD-2012-BI-00833BP

PATIENT
  Sex: Female
  Weight: 63 kg

DRUGS (11)
  1. PRADAXA [Suspect]
     Indication: ATRIAL FIBRILLATION
     Route: 048
     Dates: start: 201202, end: 201209
  2. SYNTHROID [Concomitant]
     Dosage: 0.025 mcg
     Route: 048
  3. LASIX [Concomitant]
     Dosage: 20 mg
     Route: 048
  4. AMIODARONE [Concomitant]
     Dosage: 100 mg
     Route: 048
  5. METOPROLOL [Concomitant]
     Dosage: 25 mg
     Route: 048
  6. LECITHIN [Concomitant]
     Dosage: 1200 mg
     Route: 048
  7. VITAMIN D [Concomitant]
     Dosage: 1000 mg
     Route: 048
  8. PLAVIX [Concomitant]
     Dosage: 75 mg
     Route: 048
  9. SIMVASTATIN [Concomitant]
     Route: 048
  10. FOSAMAX [Concomitant]
     Route: 048
  11. CALTRATE [Concomitant]
     Route: 048

REACTIONS (9)
  - Hip fracture [Recovered/Resolved]
  - Fall [Recovered/Resolved]
  - Dizziness [Recovered/Resolved]
  - Wrist fracture [Recovered/Resolved]
  - Fall [Recovered/Resolved]
  - Laceration [Recovered/Resolved]
  - Contusion [Recovered/Resolved]
  - Haemorrhage [Recovered/Resolved]
  - Fall [Recovered/Resolved]
